FAERS Safety Report 10852852 (Version 2)
Quarter: 2015Q1

REPORT INFORMATION
  Report Type: Spontaneous
  Country: US (occurrence: US)
  Receive Date: 20150223
  Receipt Date: 20150304
  Transmission Date: 20150721
  Serious: Yes (Death, Hospitalization)
  Sender: FDA-Public Use
  Company Number: US-AMGEN-USASP2015015612

PATIENT
  Age: 75 Year
  Sex: Female
  Weight: 55.33 kg

DRUGS (1)
  1. PROLIA [Suspect]
     Active Substance: DENOSUMAB
     Indication: OSTEOPOROSIS
     Dosage: 60 MG, UNK
     Route: 065
     Dates: start: 20140313

REACTIONS (10)
  - Peripheral ischaemia [Unknown]
  - Acute kidney injury [Unknown]
  - Respiratory failure [Unknown]
  - Hypertension [Unknown]
  - Hypokalaemia [Unknown]
  - Anaemia [Unknown]
  - White blood cell count increased [Unknown]
  - Metabolic encephalopathy [Unknown]
  - Sepsis [Fatal]
  - Intestinal ischaemia [Fatal]
